FAERS Safety Report 5799755-3 (Version None)
Quarter: 2008Q3

REPORT INFORMATION
  Report Type: 
  Country: None (occurrence: None)
  Receive Date: 20080703
  Receipt Date: 20080630
  Transmission Date: 20090109
  Serious: Yes (Hospitalization)
  Sender: FDA-Public Use
  Company Number: DK-BRISTOL-MYERS SQUIBB COMPANY-14245807

PATIENT
  Age: 47 Year
  Sex: Female

DRUGS (4)
  1. ORENCIA [Suspect]
     Indication: RHEUMATOID ARTHRITIS
     Dates: start: 20080204, end: 20080429
  2. METHOTREXATE [Concomitant]
     Dosage: THERAPY DATES 14SEP06 TO 19DEC06,17JAN07 TO 13AUG07 AND 13AUG07 TO 29APR08
     Dates: start: 20060914, end: 20080429
  3. ENBREL [Concomitant]
     Dates: start: 20070813, end: 20080104
  4. SALAZOPYRIN [Concomitant]
     Dates: start: 20061219, end: 20070315

REACTIONS (2)
  - DIABETES MELLITUS [None]
  - HYPONATRAEMIA [None]
